FAERS Safety Report 5856834-X (Version None)
Quarter: 2008Q3

REPORT INFORMATION
  Report Type: 
  Country: None (occurrence: None)
  Receive Date: 20080825
  Receipt Date: 20080819
  Transmission Date: 20090109
  Serious: Yes (Other)
  Sender: FDA-Public Use
  Company Number: US-ALLERGAN-0810418US

PATIENT
  Sex: Female

DRUGS (1)
  1. BOTOX [Suspect]
     Indication: TORTICOLLIS
     Dosage: 110 UNITS, SINGLE
     Route: 030
     Dates: start: 20080624, end: 20080624

REACTIONS (5)
  - ASTHENIA [None]
  - DIZZINESS [None]
  - INFLUENZA LIKE ILLNESS [None]
  - MENINGIOMA [None]
  - VOMITING [None]
